FAERS Safety Report 9084780 (Version 2)
Quarter: 2013Q1

REPORT INFORMATION
  Report Type: Spontaneous
  Country: US (occurrence: US)
  Receive Date: 20130131
  Receipt Date: 20130214
  Transmission Date: 20140127
  Serious: No
  Sender: FDA-Public Use
  Company Number: US-PFIZER INC-2013038123

PATIENT
  Age: 29 Year
  Sex: Female
  Weight: 127 kg

DRUGS (2)
  1. CHANTIX [Suspect]
     Indication: SMOKING CESSATION THERAPY
     Dosage: 1 MG, 2X/DAY
  2. RISPERIDONE [Concomitant]
     Indication: ANXIETY
     Dosage: 4 MG, DAILY

REACTIONS (2)
  - Drug ineffective [Unknown]
  - Stress [Unknown]
